FAERS Safety Report 16412542 (Version 1)
Quarter: 2019Q2

REPORT INFORMATION
  Report Type: Spontaneous
  Country: US (occurrence: US)
  Receive Date: 20190610
  Receipt Date: 20190610
  Transmission Date: 20190711
  Serious: No
  Sender: FDA-Public Use
  Company Number: US-CELGENEUS-USA-20190601378

PATIENT
  Sex: Male

DRUGS (2)
  1. POMALYST [Suspect]
     Active Substance: POMALIDOMIDE
     Indication: PLASMA CELL MYELOMA
  2. POMALYST [Suspect]
     Active Substance: POMALIDOMIDE
     Indication: METASTASIS
     Dosage: 4 MILLIGRAM
     Route: 048
     Dates: start: 201902

REACTIONS (2)
  - Orthostatic hypertension [Unknown]
  - Dizziness postural [Unknown]

NARRATIVE: CASE EVENT DATE: 2019
